FAERS Safety Report 19388859 (Version 1)
Quarter: 2021Q2

REPORT INFORMATION
  Report Type: Spontaneous
  Country: US (occurrence: US)
  Receive Date: 20210607
  Receipt Date: 20210607
  Transmission Date: 20210717
  Serious: Yes (Other)
  Sender: FDA-Public Use
  Company Number: None

PATIENT
  Age: 24 Year
  Sex: Male

DRUGS (1)
  1. NOVOLIN 70/30 [Suspect]
     Active Substance: INSULIN HUMAN
     Indication: DIABETES MELLITUS
     Dosage: ?          OTHER STRENGTH:100 UNITS/ML;QUANTITY:5 DF DOSAGE FORM;?
     Route: 058
     Dates: start: 20201218

REACTIONS (2)
  - Injection site reaction [None]
  - Vasodilatation [None]

NARRATIVE: CASE EVENT DATE: 20210607
